FAERS Safety Report 6182944-6 (Version None)
Quarter: 2009Q2

REPORT INFORMATION
  Report Type: 
  Country: None (occurrence: None)
  Receive Date: 20090505
  Receipt Date: 20090423
  Transmission Date: 20091009
  Serious: Yes (Other)
  Sender: FDA-Public Use
  Company Number: CA-JNJFOC-20090406470

PATIENT
  Age: 54 Year
  Sex: Female
  Weight: 59 kg

DRUGS (4)
  1. DECITABINE (DECITABINE) LYOPHILIZED POWDER [Suspect]
     Indication: NEOPLASM
     Dosage: 10 MG/M2, 1 IN 1 DAY, INTRAVENOUS; 10 MG/M2, 1 IN 1 DAY, INTRAVENOUS
     Route: 042
     Dates: start: 20090309
  2. DECITABINE (DECITABINE) LYOPHILIZED POWDER [Suspect]
     Indication: NEOPLASM
     Dosage: 10 MG/M2, 1 IN 1 DAY, INTRAVENOUS; 10 MG/M2, 1 IN 1 DAY, INTRAVENOUS
     Route: 042
     Dates: start: 20090414
  3. VORINOSTAT (ANTINEOPLASTIC AGENTS) UNSPECIFIED [Suspect]
     Indication: NEOPLASM
     Dosage: 200 MG, 2 IN 1 DAY, ORAL; 200 MG, 2 IN 1 DAY, ORAL
     Route: 048
     Dates: start: 20090309, end: 20090317
  4. VORINOSTAT (ANTINEOPLASTIC AGENTS) UNSPECIFIED [Suspect]
     Indication: NEOPLASM
     Dosage: 200 MG, 2 IN 1 DAY, ORAL; 200 MG, 2 IN 1 DAY, ORAL
     Route: 048
     Dates: start: 20090401

REACTIONS (4)
  - ERYTHEMA [None]
  - NEUTROPHIL COUNT DECREASED [None]
  - RASH PAPULAR [None]
  - WHITE BLOOD CELL COUNT DECREASED [None]
